FAERS Safety Report 8980286 (Version 3)
Quarter: 2013Q1

REPORT INFORMATION
  Report Type: Report from Study
  Country: US (occurrence: US)
  Receive Date: 20121221
  Receipt Date: 20130221
  Transmission Date: 20140127
  Serious: Yes (Other)
  Sender: FDA-Public Use
  Company Number: US-JNJFOC-20121209177

PATIENT
  Sex: Female
  Weight: 65.77 kg

DRUGS (7)
  1. REMICADE [Suspect]
     Indication: RHEUMATOID ARTHRITIS
     Route: 042
     Dates: end: 20121029
  2. REMICADE [Suspect]
     Indication: RHEUMATOID ARTHRITIS
     Route: 042
     Dates: start: 20120413
  3. TYLENOL [Concomitant]
  4. CLARITIN [Concomitant]
  5. METHOTREXATE [Concomitant]
  6. VICODIN [Concomitant]
     Dosage: DOSE= ^5 MG/ 500^
  7. FOLIC ACID [Concomitant]

REACTIONS (5)
  - Tachycardia [Recovered/Resolved]
  - Infusion related reaction [Recovered/Resolved]
  - Dyspnoea [Recovered/Resolved]
  - Chest discomfort [Recovered/Resolved]
  - Muscle spasms [Recovered/Resolved]
